FAERS Safety Report 7482506-4 (Version None)
Quarter: 2011Q2

REPORT INFORMATION
  Report Type: 
  Country: None (occurrence: None)
  Receive Date: 20110516
  Receipt Date: 20110328
  Transmission Date: 20111010
  Serious: Yes (Hospitalization, Other)
  Sender: FDA-Public Use
  Company Number: US-BAYER-201038307NA

PATIENT
  Age: 29 Year
  Sex: Female

DRUGS (17)
  1. DILAUDID [Concomitant]
     Indication: PAIN
     Dosage: 8 MG, UNK
     Dates: start: 20081201
  2. CREON [Concomitant]
     Dosage: 10 MG, UNK
     Dates: start: 20081201
  3. ANTIBIOTICS [Concomitant]
     Dosage: UNK
     Dates: start: 20080901
  4. PROTONIX [Concomitant]
     Dosage: 40 MG, UNK
     Route: 042
     Dates: start: 20080901
  5. FLAGYL [Concomitant]
     Dosage: UNK
     Dates: start: 20090101
  6. ZOFRAN [Concomitant]
     Dosage: UNK
     Dates: start: 20090101
  7. AMLODIPINE BESYLATE [Concomitant]
     Dosage: UNK
     Dates: start: 20090101
  8. REGLAN [Concomitant]
     Dosage: 10 MG, UNK
     Dates: start: 20081201
  9. IRON SULFATETHIAMIN COMPOUND TAB [Concomitant]
     Dosage: 325 MG, UNK
     Dates: start: 20081201
  10. COLACE [Concomitant]
     Dosage: 10 MG, UNK
     Dates: start: 20081201
  11. TPN [Concomitant]
     Indication: PAIN MANAGEMENT
     Dosage: UNK
     Dates: start: 20080901, end: 20081001
  12. YASMIN [Suspect]
     Indication: ACNE
  13. PROTONIX [Concomitant]
  14. YAZ [Suspect]
     Indication: ACNE
  15. BETA BLOCKING AGENTS [Concomitant]
     Dosage: UNK
     Dates: start: 20081001
  16. NOVOLIN R [Concomitant]
     Dosage: UNK UNK, PRN
     Dates: start: 20081001
  17. LEXAPRO [Concomitant]
     Dosage: 5 MG, UNK
     Dates: start: 20081201

REACTIONS (10)
  - POSTPARTUM DEPRESSION [None]
  - VOMITING [None]
  - NAUSEA [None]
  - ERUCTATION [None]
  - INJURY [None]
  - CHOLANGITIS [None]
  - CHOLELITHIASIS [None]
  - CHOLECYSTITIS CHRONIC [None]
  - ABDOMINAL PAIN [None]
  - PANCREATIC PHLEGMON [None]
